FAERS Safety Report 12447237 (Version 1)
Quarter: 2016Q2

REPORT INFORMATION
  Report Type: Spontaneous
  Country: DK (occurrence: DK)
  Receive Date: 20160608
  Receipt Date: 20160608
  Transmission Date: 20160815
  Serious: Yes (Hospitalization)
  Sender: FDA-Public Use
  Company Number: DK-ASTRAZENECA-2016SE57326

PATIENT
  Age: 21206 Day
  Sex: Male

DRUGS (15)
  1. ANTABUSE [Concomitant]
     Active Substance: DISULFIRAM
     Indication: ALCOHOL USE
  2. TRADOLAN [Concomitant]
     Active Substance: TRAMADOL
     Indication: PAIN
  3. CARVEDILOL. [Concomitant]
     Active Substance: CARVEDILOL
     Indication: CARDIAC DISORDER
     Dosage: PCD
  4. RAMIPRIL. [Concomitant]
     Active Substance: RAMIPRIL
     Indication: CARDIAC DISORDER
     Dosage: STADA
  5. CLOPIDOGREL [Concomitant]
     Active Substance: CLOPIDOGREL BISULFATE
     Indication: ANTICOAGULANT THERAPY
     Dosage: ACTAVIS
  6. OLANZAPIN [Concomitant]
     Active Substance: OLANZAPINE
     Indication: MENTAL DISORDER
  7. OXAPAX [Concomitant]
     Active Substance: OXAZEPAM
     Indication: SEDATION
  8. RIVOTRIL [Concomitant]
     Active Substance: CLONAZEPAM
     Indication: SEDATION
  9. FORXIGA [Suspect]
     Active Substance: DAPAGLIFLOZIN
     Indication: TYPE 2 DIABETES MELLITUS
     Route: 048
     Dates: start: 20150110, end: 20160514
  10. AKINETON [Concomitant]
     Active Substance: BIPERIDEN HYDROCHLORIDE
     Indication: PRODUCT USED FOR UNKNOWN INDICATION
  11. METFORMIN [Concomitant]
     Active Substance: METFORMIN HYDROCHLORIDE
     Indication: TYPE 2 DIABETES MELLITUS
  12. MOVICOL [Concomitant]
     Active Substance: POLYETHYLENE GLYCOL 3350\POTASSIUM CHLORIDE\SODIUM BICARBONATE\SODIUM CHLORIDE
     Indication: CONSTIPATION
     Dosage: DOSIS: VED BEHOV.
  13. PINEX [Concomitant]
     Active Substance: ACETAMINOPHEN
     Indication: PAIN
  14. DELEPSINE RETARD [Concomitant]
     Active Substance: DIVALPROEX SODIUM
     Indication: MOOD SWINGS
  15. GABAPENTIN. [Concomitant]
     Active Substance: GABAPENTIN
     Indication: NEURALGIA

REACTIONS (1)
  - Diabetic ketoacidosis [Recovered/Resolved]

NARRATIVE: CASE EVENT DATE: 20160514
